FAERS Safety Report 15122866 (Version 2)
Quarter: 2018Q3

REPORT INFORMATION
  Report Type: Spontaneous
  Country: AT (occurrence: AT)
  Receive Date: 20180709
  Receipt Date: 20180913
  Transmission Date: 20181010
  Serious: Yes (Congenital Anomaly, Other)
  Sender: FDA-Public Use
  Company Number: AT-MYLANLABS-2018M1047887

PATIENT
  Sex: Female

DRUGS (2)
  1. METOPROLOL. [Suspect]
     Active Substance: METOPROLOL
     Indication: PRODUCT USED FOR UNKNOWN INDICATION
     Dosage: UNK
     Route: 064
  2. OLMESARTAN MEDOXOMIL. [Suspect]
     Active Substance: OLMESARTAN MEDOXOMIL
     Indication: ESSENTIAL HYPERTENSION
     Dosage: UNK
     Route: 064

REACTIONS (11)
  - Microcephaly [Unknown]
  - Renal cyst [Not Recovered/Not Resolved]
  - Kidney enlargement [Unknown]
  - Oligohydramnios [Recovered/Resolved]
  - Proteinuria [Recovered/Resolved]
  - Foetal exposure during pregnancy [Recovered/Resolved]
  - Foetal renal impairment [Unknown]
  - Hypotonia [Not Recovered/Not Resolved]
  - Renal impairment neonatal [Unknown]
  - Failure to thrive [Unknown]
  - Hypotonia neonatal [Not Recovered/Not Resolved]
